FAERS Safety Report 5896503-3 (Version None)
Quarter: 2008Q3

REPORT INFORMATION
  Report Type: 
  Country: None (occurrence: None)
  Receive Date: 20080924
  Receipt Date: 20070828
  Transmission Date: 20090109
  Serious: No
  Sender: FDA-Public Use
  Company Number: US-BAYER-200712094BWH

PATIENT
  Sex: Female

DRUGS (1)
  1. AVELOX [Suspect]
     Indication: PHARYNGITIS STREPTOCOCCAL
     Route: 048
     Dates: start: 20070601

REACTIONS (3)
  - CHROMATURIA [None]
  - DYSURIA [None]
  - NAUSEA [None]
